FAERS Safety Report 18177942 (Version 2)
Quarter: 2020Q4

REPORT INFORMATION
  Report Type: Report from Study
  Country: US (occurrence: US)
  Receive Date: 20200820
  Receipt Date: 20201006
  Transmission Date: 20210113
  Serious: Yes (Hospitalization)
  Sender: FDA-Public Use
  Company Number: US-INTERCEPT-CT2020001665

PATIENT
  Age: 66 Year
  Sex: Male
  Weight: 102 kg

DRUGS (18)
  1. OBETICHOLIC ACID [Suspect]
     Active Substance: OBETICHOLIC ACID
     Indication: NON-ALCOHOLIC STEATOHEPATITIS
     Dosage: 10 MG, QD
     Route: 048
     Dates: start: 20200529, end: 20200809
  2. LOVAZA [Concomitant]
     Active Substance: OMEGA-3-ACID ETHYL ESTERS
     Indication: HYPERLIPIDAEMIA
     Dosage: 1 G, QD
     Route: 048
     Dates: start: 2004
  3. RAMIPRIL. [Concomitant]
     Active Substance: RAMIPRIL
     Indication: HYPERTENSION
     Dosage: 10 MG, QD
     Route: 048
     Dates: start: 2004
  4. FEROSUL [Concomitant]
     Active Substance: FERROUS SULFATE
     Indication: MINERAL SUPPLEMENTATION
     Dosage: 1 TABLET, QD
     Route: 048
     Dates: start: 201903
  5. FUROSEMIDE. [Concomitant]
     Active Substance: FUROSEMIDE
     Indication: OEDEMA PERIPHERAL
     Dosage: 20 MG, QD
     Route: 048
     Dates: start: 2016
  6. ATORVASTATIN [Concomitant]
     Active Substance: ATORVASTATIN
     Indication: HYPERLIPIDAEMIA
     Dosage: 10 MG, QD
     Route: 048
     Dates: start: 2004
  7. FENOFIBRATE. [Concomitant]
     Active Substance: FENOFIBRATE
     Indication: HYPERLIPIDAEMIA
     Dosage: 160 MG, QD
     Route: 048
     Dates: start: 2004
  8. MULTIVITAMINS WITH IRON [Concomitant]
     Active Substance: IRON\VITAMINS
     Indication: VITAMIN SUPPLEMENTATION
     Dosage: 1 TABLET, QD
     Route: 048
     Dates: start: 2004
  9. SLO-NIACIN [Concomitant]
     Active Substance: NIACIN
     Indication: HYPERLIPIDAEMIA
     Dosage: 500 MG, BID
     Route: 048
     Dates: start: 2004
  10. NITROGLYCERIN. [Concomitant]
     Active Substance: NITROGLYCERIN
     Indication: CORONARY ARTERY DISEASE
     Dosage: 0.4 MG, PRN
     Route: 048
     Dates: start: 2004
  11. FINASTERIDE. [Concomitant]
     Active Substance: FINASTERIDE
     Indication: BENIGN PROSTATIC HYPERPLASIA
     Dosage: 5 MG, QD
     Route: 048
     Dates: start: 2016
  12. HUMALOG [Concomitant]
     Active Substance: INSULIN LISPRO
     Indication: TYPE 2 DIABETES MELLITUS
     Dosage: UNK UNK, TID
     Route: 058
     Dates: start: 201903
  13. ASPIRIN. [Concomitant]
     Active Substance: ASPIRIN
     Indication: CORONARY ARTERY DISEASE
     Dosage: 81 MG, QD
     Route: 048
     Dates: start: 2004
  14. NADOLOL. [Concomitant]
     Active Substance: NADOLOL
     Indication: HYPERTENSION
     Dosage: 20 MG, QD
     Route: 048
     Dates: start: 20180816
  15. CIALIS [Concomitant]
     Active Substance: TADALAFIL
     Indication: BENIGN PROSTATIC HYPERPLASIA
     Dosage: 10 MG, QD
     Route: 048
     Dates: start: 201909
  16. METFORMIN [Concomitant]
     Active Substance: METFORMIN HYDROCHLORIDE
     Indication: TYPE 2 DIABETES MELLITUS
     Dosage: 500 MG, BID
     Route: 048
     Dates: start: 2008
  17. OMEPRAZOLE. [Concomitant]
     Active Substance: OMEPRAZOLE
     Indication: GASTROOESOPHAGEAL REFLUX DISEASE
     Dosage: 40 MG, QD
     Route: 048
     Dates: start: 20181016
  18. LANTUS [Concomitant]
     Active Substance: INSULIN GLARGINE
     Indication: TYPE 2 DIABETES MELLITUS
     Dosage: UNK UNK, QD
     Route: 058
     Dates: start: 201903

REACTIONS (1)
  - Pancreatitis acute [Recovered/Resolved]

NARRATIVE: CASE EVENT DATE: 20200809
